FAERS Safety Report 7373257-5 (Version None)
Quarter: 2011Q1

REPORT INFORMATION
  Report Type: 
  Country: None (occurrence: None)
  Receive Date: 20110324
  Receipt Date: 20110318
  Transmission Date: 20110831
  Serious: Yes (Other)
  Sender: FDA-Public Use
  Company Number: US-GILEAD-2011-0035167

PATIENT
  Sex: Male

DRUGS (11)
  1. LETAIRIS [Suspect]
     Indication: PULMONARY HYPERTENSION
     Dates: start: 20100301, end: 20110112
  2. ATENOLOL [Concomitant]
  3. AMLODIPINE [Concomitant]
  4. ATACAND [Concomitant]
  5. LASIX [Concomitant]
  6. LEXAPRO [Concomitant]
  7. ASPIRIN [Concomitant]
  8. ADVAIR DISKUS 100/50 [Concomitant]
  9. SPIRIVA [Concomitant]
  10. PLAVIX [Concomitant]
  11. ACIPHEX [Concomitant]

REACTIONS (2)
  - MALAISE [None]
  - HAEMOPTYSIS [None]
